FAERS Safety Report 9789705 (Version 1)
Quarter: 2013Q4

REPORT INFORMATION
  Report Type: Spontaneous
  Country: CO (occurrence: None)
  Receive Date: 20131227
  Receipt Date: 20131227
  Transmission Date: 20140711
  Serious: Yes (Other)
  Sender: FDA-Public Use
  Company Number: DSU-2013-05399

PATIENT
  Age: 97 Year
  Sex: Male

DRUGS (2)
  1. OLMETEC HCT [Suspect]
     Indication: HYPERTENSION
     Route: 048
     Dates: start: 2007, end: 20131127
  2. OLMETEC HCT [Suspect]
     Route: 048
     Dates: start: 2007, end: 20131127

REACTIONS (2)
  - Renal disorder [None]
  - Blood creatinine increased [None]
